FAERS Safety Report 6590644-3 (Version None)
Quarter: 2010Q1

REPORT INFORMATION
  Report Type: 
  Country: None (occurrence: None)
  Receive Date: 20100219
  Receipt Date: 20100217
  Transmission Date: 20100710
  Serious: Yes (Other)
  Sender: FDA-Public Use
  Company Number: A0845019A

PATIENT
  Age: 52 Year
  Sex: Female
  Weight: 131.8 kg

DRUGS (1)
  1. AVANDIA [Suspect]
     Indication: DIABETES MELLITUS
     Route: 048
     Dates: start: 20000526, end: 20010511

REACTIONS (3)
  - DEFORMITY [None]
  - OEDEMA [None]
  - WEIGHT INCREASED [None]
